FAERS Safety Report 13762177 (Version 1)
Quarter: 2017Q3

REPORT INFORMATION
  Report Type: Spontaneous
  Country: US (occurrence: US)
  Receive Date: 20170718
  Receipt Date: 20170718
  Transmission Date: 20171127
  Serious: Yes (Hospitalization, Other)
  Sender: FDA-Public Use
  Company Number: US-STRIDES ARCOLAB LIMITED-2016SP015118

PATIENT

DRUGS (2)
  1. MYCOPHENOLATE MOFETIL. [Suspect]
     Active Substance: MYCOPHENOLATE MOFETIL
     Indication: SYSTEMIC LUPUS ERYTHEMATOSUS
     Dosage: 1500 MG, BID
     Route: 048
  2. PREDNISOLONE. [Suspect]
     Active Substance: PREDNISOLONE
     Indication: SYSTEMIC LUPUS ERYTHEMATOSUS
     Dosage: 30 MG, QD
     Route: 048

REACTIONS (9)
  - Pain [Recovered/Resolved]
  - Swelling [Recovered/Resolved]
  - Cellulitis [Recovered/Resolved]
  - Histoplasmosis disseminated [Recovered/Resolved]
  - Induration [Recovered/Resolved]
  - Mobility decreased [Recovered/Resolved]
  - Erythema [Recovered/Resolved]
  - Myositis [Recovered/Resolved]
  - Tenosynovitis [Recovered/Resolved]
